FAERS Safety Report 9372126 (Version 1)
Quarter: 2013Q2

REPORT INFORMATION
  Report Type: Report from Study
  Country: US (occurrence: US)
  Receive Date: 20130627
  Receipt Date: 20130627
  Transmission Date: 20140414
  Serious: Yes (Other)
  Sender: FDA-Public Use
  Company Number: US-MYLANLABS-2012S1015461

PATIENT
  Age: 22 Year
  Sex: Male
  Weight: 88.45 kg

DRUGS (12)
  1. CLOZAPINE TABLETS [Suspect]
     Indication: SCHIZOPHRENIA, PARANOID TYPE
     Route: 048
     Dates: start: 20120723, end: 20120725
  2. CLOZAPINE TABLETS [Suspect]
     Indication: SCHIZOPHRENIA, PARANOID TYPE
     Route: 048
     Dates: start: 20120726, end: 201207
  3. CLOZAPINE TABLETS [Suspect]
     Indication: SCHIZOPHRENIA, PARANOID TYPE
     Route: 048
     Dates: start: 201207, end: 20120729
  4. MULTIVITAMIN [Concomitant]
     Route: 048
  5. RISPERDAL [Concomitant]
     Dosage: TAPER STARTED ON 23-JUL-2012
  6. COGENTIN [Concomitant]
  7. BENADRYL [Concomitant]
  8. HALDOL [Concomitant]
  9. VISTARIL [Concomitant]
  10. IBUPROFEN [Concomitant]
  11. ATIVAN [Concomitant]
  12. PHENOBARBITAL [Concomitant]

REACTIONS (1)
  - Granulocytopenia [Not Recovered/Not Resolved]
